FAERS Safety Report 9761671 (Version 1)
Quarter: 2013Q4

REPORT INFORMATION
  Report Type: Spontaneous
  Country: BR (occurrence: BR)
  Receive Date: 20131216
  Receipt Date: 20131216
  Transmission Date: 20140711
  Serious: Yes (Other)
  Sender: FDA-Public Use
  Company Number: BR-PFIZER INC-2013352319

PATIENT
  Age: 35 Year
  Sex: Female

DRUGS (2)
  1. GEODON [Suspect]
     Indication: SCHIZOPHRENIA
     Dosage: 120 MG, DAILY
     Dates: start: 201310
  2. BIPERIDEN [Concomitant]
     Dosage: UNK
     Dates: start: 201309

REACTIONS (5)
  - Suicide attempt [Unknown]
  - Drug ineffective [Unknown]
  - Weight decreased [Unknown]
  - Hypervigilance [Unknown]
  - Therapeutic response unexpected [Unknown]
